FAERS Safety Report 5399549-7 (Version None)
Quarter: 2007Q3

REPORT INFORMATION
  Report Type: 
  Country: None (occurrence: None)
  Receive Date: 20070727
  Receipt Date: 20070716
  Transmission Date: 20080115
  Serious: Yes (Hospitalization, Other)
  Sender: FDA-Public Use
  Company Number: US-PFIZER INC-2006151383

PATIENT
  Sex: Female
  Weight: 68 kg

DRUGS (5)
  1. BEXTRA [Suspect]
     Indication: ARTHRITIS
     Dosage: FREQ:FREQUENCY: 1-2X
  2. VIOXX [Suspect]
     Indication: ARTHRITIS
     Route: 048
     Dates: start: 20010105
  3. ASPIRIN [Concomitant]
  4. SYNTHROID [Concomitant]
     Dates: start: 20020629
  5. ESTRACE [Concomitant]
     Dates: start: 20020629

REACTIONS (1)
  - CEREBROVASCULAR ACCIDENT [None]
